FAERS Safety Report 12549799 (Version 1)
Quarter: 2016Q3

REPORT INFORMATION
  Report Type: Spontaneous
  Country: US (occurrence: US)
  Receive Date: 20160712
  Receipt Date: 20160712
  Transmission Date: 20161109
  Serious: No
  Sender: FDA-Public Use
  Company Number: US-PFIZER INC-2016304423

PATIENT
  Sex: Male

DRUGS (2)
  1. ATROPINE SULFATE. [Suspect]
     Active Substance: ATROPINE SULFATE
  2. CALCIUM [Suspect]
     Active Substance: CALCIUM

REACTIONS (2)
  - Wrong drug administered [Unknown]
  - Heart rate increased [Unknown]
